FAERS Safety Report 10376936 (Version 3)
Quarter: 2014Q4

REPORT INFORMATION
  Report Type: Spontaneous
  Country: CH (occurrence: CH)
  Receive Date: 20140812
  Receipt Date: 20141022
  Transmission Date: 20150528
  Serious: Yes (Disabling)
  Sender: FDA-Public Use
  Company Number: CH-ROCHE-1448015

PATIENT
  Age: 53 Year
  Sex: Male
  Weight: 89 kg

DRUGS (5)
  1. DIOVAN [Concomitant]
     Active Substance: VALSARTAN
     Indication: HYPERTENSION
     Route: 048
     Dates: start: 2012
  2. NEXIUM [Concomitant]
     Active Substance: ESOMEPRAZOLE MAGNESIUM
     Indication: GASTRITIS
     Route: 048
     Dates: start: 2008
  3. PEGASYS [Suspect]
     Active Substance: PEGINTERFERON ALFA-2A
     Indication: POLYCYTHAEMIA VERA
     Route: 058
     Dates: start: 20111112
  4. SALOSPIR [Concomitant]
     Active Substance: ASPIRIN\CAFFEINE
     Indication: POLYCYTHAEMIA VERA
     Route: 048
     Dates: start: 2004
  5. INTERFERON ALFA-2A [Suspect]
     Active Substance: INTERFERON ALFA-2A
     Indication: POLYCYTHAEMIA VERA
     Route: 058
     Dates: start: 201302

REACTIONS (4)
  - Leukopenia [Not Recovered/Not Resolved]
  - Hypergammaglobulinaemia [Unknown]
  - Thrombocytopenia [Not Recovered/Not Resolved]
  - Morphoea [Not Recovered/Not Resolved]

NARRATIVE: CASE EVENT DATE: 201312
